FAERS Safety Report 4483628-2 (Version None)
Quarter: 2004Q4

REPORT INFORMATION
  Report Type: 
  Country: None (occurrence: None)
  Receive Date: 20041021
  Receipt Date: 20041021
  Transmission Date: 20050328
  Serious: Yes (Hospitalization)
  Sender: FDA-Public Use
  Company Number: None

PATIENT
  Age: 43 Year
  Sex: Male
  Weight: 75.8 kg

DRUGS (11)
  1. GEODON [Suspect]
  2. HYDROCHLOROTHIAZIDE TAB [Concomitant]
  3. GUAIFENESIN [Concomitant]
  4. AZITHROMYCIN [Concomitant]
  5. ACETAMINOPHEN (INPT-UD) TAB [Concomitant]
  6. SIMVASTATIN TAB [Concomitant]
  7. OMEPRAZOLE CAP,SA [Concomitant]
  8. METOPROLOL TAB [Concomitant]
  9. HCTZ 12.5 / IRBESARTAN [Concomitant]
  10. DIPHENHYDRAMINE CAP [Concomitant]
  11. OLANZAPINE [Concomitant]

REACTIONS (3)
  - ANAPHYLACTIC REACTION [None]
  - ANXIETY [None]
  - SWOLLEN TONGUE [None]
